FAERS Safety Report 12257166 (Version 1)
Quarter: 2016Q2

REPORT INFORMATION
  Report Type: Spontaneous
  Country: US (occurrence: None)
  Receive Date: 20160411
  Receipt Date: 20160411
  Transmission Date: 20160815
  Serious: Yes (Hospitalization, Other)
  Sender: FDA-Public Use
  Company Number: None

PATIENT
  Age: 50 Year
  Sex: Female
  Weight: 96.9 kg

DRUGS (2)
  1. GADAVIST [Suspect]
     Active Substance: GADOBUTROL
     Indication: IMAGING PROCEDURE
     Dosage: 4.8 MMOL (0.5 MMOL/KG) IVP X 2 DOSES
     Dates: start: 20151023
  2. ADENOSINE. [Concomitant]
     Active Substance: ADENOSINE

REACTIONS (9)
  - Urticaria [None]
  - Diarrhoea [None]
  - Contrast media reaction [None]
  - Swollen tongue [None]
  - Rash maculo-papular [None]
  - Abdominal discomfort [None]
  - Face oedema [None]
  - Hangover [None]
  - Pruritus [None]

NARRATIVE: CASE EVENT DATE: 20151023
